FAERS Safety Report 14559050 (Version 1)
Quarter: 2018Q1

REPORT INFORMATION
  Report Type: Spontaneous
  Country: IT (occurrence: IT)
  Receive Date: 20180221
  Receipt Date: 20180221
  Transmission Date: 20180509
  Serious: Yes (Other)
  Sender: FDA-Public Use
  Company Number: IT-ASTRAZENECA-2018SE19425

PATIENT
  Age: 55 Year
  Sex: Female

DRUGS (2)
  1. QUETIAPINE. [Suspect]
     Active Substance: QUETIAPINE
     Indication: DRUG ABUSE
     Dosage: 40.0DF ONCE/SINGLE ADMINISTRATION
     Route: 048
  2. FLUNOX [Suspect]
     Active Substance: FLURAZEPAM HYDROCHLORIDE
     Dosage: 3.0DF ONCE/SINGLE ADMINISTRATION
     Route: 048

REACTIONS (2)
  - Drug abuse [Unknown]
  - Sopor [Unknown]

NARRATIVE: CASE EVENT DATE: 20170319
